FAERS Safety Report 5778687-0 (Version None)
Quarter: 2008Q2

REPORT INFORMATION
  Report Type: 
  Country: None (occurrence: None)
  Receive Date: 20080619
  Receipt Date: 20080616
  Transmission Date: 20081010
  Serious: Yes (Other)
  Sender: FDA-Public Use
  Company Number: D0057397A

PATIENT
  Age: 51 Year
  Sex: Male

DRUGS (4)
  1. VIANI DISKUS [Suspect]
     Dosage: 300MCG TWICE PER DAY
     Route: 055
  2. AERODUR [Concomitant]
     Route: 055
  3. FLUTIDE DISKUS [Concomitant]
     Route: 055
  4. FORADIL [Concomitant]

REACTIONS (7)
  - ANGINA PECTORIS [None]
  - CARDIAC DISORDER [None]
  - CHEST DISCOMFORT [None]
  - DRUG INEFFECTIVE [None]
  - DYSPNOEA [None]
  - NAUSEA [None]
  - PALPITATIONS [None]
